FAERS Safety Report 5375455-9 (Version None)
Quarter: 2007Q2

REPORT INFORMATION
  Report Type: 
  Country: None (occurrence: None)
  Receive Date: 20070629
  Receipt Date: 20070622
  Transmission Date: 20071010
  Serious: Yes (Other)
  Sender: FDA-Public Use
  Company Number: US-PFIZER INC-2007042635

PATIENT
  Sex: Female
  Weight: 63.636 kg

DRUGS (6)
  1. SOLU-MEDROL [Suspect]
     Indication: MULTIPLE SCLEROSIS
     Route: 042
  2. EFFEXOR [Concomitant]
     Dosage: DAILY DOSE:150MG
  3. IBANDRONATE SODIUM [Concomitant]
  4. SUDAFED 12 HOUR [Concomitant]
  5. PRILOSEC [Concomitant]
  6. CHANTIX [Concomitant]

REACTIONS (2)
  - DEPRESSION [None]
  - HEART RATE DECREASED [None]
